FAERS Safety Report 9759890 (Version 1)
Quarter: 2013Q4

REPORT INFORMATION
  Report Type: Spontaneous
  Country: US (occurrence: US)
  Receive Date: 20131216
  Receipt Date: 20131216
  Transmission Date: 20140711
  Serious: No
  Sender: FDA-Public Use
  Company Number: US-ENDO PHARMACEUTICALS INC.-BUTA20110008

PATIENT
  Age: 34 Year
  Sex: Female

DRUGS (2)
  1. BUTALBITAL/ACETAMINOPHEN/CAFFEINE TABLETS [Suspect]
     Indication: MIGRAINE
     Dosage: ONE TAB Q4H PRN
     Route: 048
     Dates: start: 20100224
  2. PRENATAL VITAMINS [Concomitant]

REACTIONS (2)
  - Drug screen positive [Recovered/Resolved]
  - Foetal exposure during pregnancy [Not Recovered/Not Resolved]
